FAERS Safety Report 14356499 (Version 3)
Quarter: 2018Q1

REPORT INFORMATION
  Report Type: Report from Study
  Country: US (occurrence: US)
  Receive Date: 20180105
  Receipt Date: 20180223
  Transmission Date: 20180509
  Serious: Yes (Hospitalization)
  Sender: FDA-Public Use
  Company Number: US-ACTELION-A-NJ2015-124639

PATIENT
  Age: 58 Year
  Sex: Female
  Weight: 68.93 kg

DRUGS (3)
  1. OPSUMIT [Suspect]
     Active Substance: MACITENTAN
     Indication: PULMONARY ARTERIAL HYPERTENSION
     Dosage: 10 MG, QD
     Route: 048
     Dates: start: 20150805
  2. ADCIRCA [Concomitant]
     Active Substance: TADALAFIL
  3. WARFARIN [Concomitant]
     Active Substance: WARFARIN

REACTIONS (18)
  - Weight decreased [Unknown]
  - Cardiac flutter [Unknown]
  - Cardiac failure congestive [Unknown]
  - Anxiety [Unknown]
  - Chest pain [Unknown]
  - Bone pain [Unknown]
  - Hot flush [Unknown]
  - Pulmonary pain [Unknown]
  - Headache [Unknown]
  - Fall [Unknown]
  - Asthenia [Unknown]
  - Chronic obstructive pulmonary disease [Unknown]
  - Malaise [Unknown]
  - Dizziness [Unknown]
  - Back pain [Unknown]
  - Chest discomfort [Unknown]
  - Fatigue [Unknown]
  - Dependence on oxygen therapy [Unknown]

NARRATIVE: CASE EVENT DATE: 20150921
